FAERS Safety Report 9039871 (Version 1)
Quarter: 2013Q1

REPORT INFORMATION
  Report Type: Spontaneous
  Country: US (occurrence: US)
  Receive Date: 20130130
  Receipt Date: 20130130
  Transmission Date: 20140127
  Serious: No
  Sender: FDA-Public Use
  Company Number: US-BIOGENIDEC-2013BI007141

PATIENT
  Age: 28 Year
  Sex: Female

DRUGS (1)
  1. TYSABRI [Suspect]
     Indication: MULTIPLE SCLEROSIS
     Route: 042
     Dates: start: 20110923

REACTIONS (8)
  - Eczema [Unknown]
  - Psoriasis [Unknown]
  - Incontinence [Unknown]
  - Vision blurred [Unknown]
  - Diplopia [Unknown]
  - Neuralgia [Unknown]
  - Multiple sclerosis relapse [Unknown]
  - Acne [Unknown]
